FAERS Safety Report 13656053 (Version 2)
Quarter: 2017Q3

REPORT INFORMATION
  Report Type: Other
  Country: CA (occurrence: CA)
  Receive Date: 20170615
  Receipt Date: 20170801
  Transmission Date: 20171127
  Serious: Yes (Other)
  Sender: FDA-Public Use
  Company Number: CA-LUPIN PHARMACEUTICALS INC.-2017-02920

PATIENT
  Sex: Male

DRUGS (1)
  1. NORETHINDRONE TABLETS [Suspect]
     Active Substance: NORETHINDRONE
     Indication: CONTRACEPTION
     Dosage: UNK
     Route: 063

REACTIONS (2)
  - Exposure during breast feeding [Unknown]
  - Haemorrhage [Recovered/Resolved]
